FAERS Safety Report 14000257 (Version 1)
Quarter: 2017Q3

REPORT INFORMATION
  Report Type: Spontaneous
  Country: US (occurrence: US)
  Receive Date: 20170922
  Receipt Date: 20170922
  Transmission Date: 20171128
  Serious: Yes (Other)
  Sender: FDA-Public Use
  Company Number: None

PATIENT
  Age: 57 Year
  Sex: Female
  Weight: 80.1 kg

DRUGS (4)
  1. CEFUROXIME AXETIL 250MG [Suspect]
     Active Substance: CEFUROXIME AXETIL
     Indication: URINARY TRACT INFECTION
     Dosage: ?          QUANTITY:20 TABLET(S);?
     Route: 048
     Dates: start: 20170825, end: 20170905
  2. COQ10 [Concomitant]
     Active Substance: UBIDECARENONE
  3. MULTI VITAMINS [Concomitant]
     Active Substance: VITAMINS
  4. CALCIUM/MAGNESIUM [Concomitant]
     Active Substance: CALCIUM\MAGNESIUM

REACTIONS (3)
  - Pruritus [None]
  - Rash generalised [None]
  - Rash [None]

NARRATIVE: CASE EVENT DATE: 20170910
